FAERS Safety Report 6312175-8 (Version None)
Quarter: 2009Q3

REPORT INFORMATION
  Report Type: 
  Country: None (occurrence: None)
  Receive Date: 20090817
  Receipt Date: 20090810
  Transmission Date: 20100115
  Serious: Yes (Life-Threatening, Other)
  Sender: FDA-Public Use
  Company Number: JP-ABBOTT-07P-087-0418261-00

PATIENT
  Age: 63 Year
  Sex: Female
  Weight: 64 kg

DRUGS (4)
  1. CEFDINIR [Suspect]
     Indication: POSTOPERATIVE WOUND INFECTION
     Route: 048
     Dates: start: 20070916, end: 20070916
  2. LOXONIN [Concomitant]
     Indication: DRUG USE FOR UNKNOWN INDICATION
     Route: 048
  3. KELNAC [Concomitant]
     Indication: DRUG USE FOR UNKNOWN INDICATION
  4. CEFMETAZOLE SODIUM [Concomitant]
     Indication: INFECTION
     Route: 042

REACTIONS (5)
  - DRUG ERUPTION [None]
  - HAEMODIALYSIS [None]
  - HEPATIC FAILURE [None]
  - PLATELET COUNT DECREASED [None]
  - RENAL FAILURE [None]
